FAERS Safety Report 7777794-0 (Version None)
Quarter: 2011Q3

REPORT INFORMATION
  Report Type: 
  Country: None (occurrence: None)
  Receive Date: 20110926
  Receipt Date: 20110915
  Transmission Date: 20111222
  Serious: No
  Sender: FDA-Public Use
  Company Number: US-BIOGENIDEC-2010BI043083

PATIENT
  Age: 51 Year
  Sex: Male

DRUGS (1)
  1. TYSABRI [Suspect]
     Indication: MULTIPLE SCLEROSIS
     Route: 042
     Dates: start: 20100815

REACTIONS (6)
  - BRAIN OPERATION [None]
  - COORDINATION ABNORMAL [None]
  - FATIGUE [None]
  - LUNG INFECTION [None]
  - TOOTHACHE [None]
  - TRIGEMINAL NEURALGIA [None]
